FAERS Safety Report 6748552-0 (Version None)
Quarter: 2010Q2

REPORT INFORMATION
  Report Type: 
  Country: None (occurrence: None)
  Receive Date: 20100601
  Receipt Date: 20100514
  Transmission Date: 20101027
  Serious: Yes (Hospitalization, Other)
  Sender: FDA-Public Use
  Company Number: US-BAYER-200942960NA

PATIENT
  Age: 32 Year
  Sex: Female
  Weight: 75 kg

DRUGS (10)
  1. YASMIN [Suspect]
     Indication: CONTRACEPTION
     Dates: start: 20061101, end: 20061201
  2. CIPROFLOXACIN [Concomitant]
     Dates: start: 20070301
  3. ASCORBIC ACID [Concomitant]
  4. VOLTAREN [Concomitant]
     Dates: start: 20061207
  5. WARFARIN SODIUM [Concomitant]
     Dates: start: 20061201, end: 20081101
  6. COUMADIN [Concomitant]
     Dates: start: 20070101, end: 20080801
  7. LOVENOX [Concomitant]
     Dates: start: 20080701, end: 20081101
  8. CEPHALEXIN [Concomitant]
     Dates: start: 20080701
  9. METRONIDAZOLE [Concomitant]
     Dates: start: 20081101
  10. HEPARIN [Concomitant]
     Dates: start: 20081101, end: 20090201

REACTIONS (5)
  - BRAIN INJURY [None]
  - CEREBRAL THROMBOSIS [None]
  - CEREBRAL VENOUS THROMBOSIS [None]
  - COMPLICATION OF PREGNANCY [None]
  - HEADACHE [None]
